FAERS Safety Report 4369735-3 (Version None)
Quarter: 2004Q2

REPORT INFORMATION
  Report Type: 
  Country: None (occurrence: None)
  Receive Date: 20040527
  Receipt Date: 20040517
  Transmission Date: 20050107
  Serious: Yes (Hospitalization, Other)
  Sender: FDA-Public Use
  Company Number: 2004-03-0867

PATIENT
  Age: 62 Year

DRUGS (2)
  1. INTRON A [Suspect]
     Indication: CHRONIC MYELOID LEUKAEMIA
     Dosage: SEE IMAGE
     Dates: start: 20000101, end: 20040301
  2. INTRON A [Suspect]
     Indication: CHRONIC MYELOID LEUKAEMIA
     Dosage: SEE IMAGE
     Dates: start: 20040101

REACTIONS (2)
  - CEREBRAL HAEMORRHAGE [None]
  - DEMENTIA [None]
